FAERS Safety Report 20847532 (Version 1)
Quarter: 2022Q2

REPORT INFORMATION
  Report Type: Spontaneous
  Country: GR (occurrence: GR)
  Receive Date: 20220519
  Receipt Date: 20220519
  Transmission Date: 20220720
  Serious: Yes (Other)
  Sender: FDA-Public Use
  Company Number: GR-AMGEN-GRCSP2022081782

PATIENT
  Age: 63 Year
  Sex: Female

DRUGS (1)
  1. BEVACIZUMAB [Suspect]
     Active Substance: BEVACIZUMAB
     Indication: Product used for unknown indication
     Dosage: UNK

REACTIONS (5)
  - Vitreoretinal traction syndrome [Unknown]
  - Macular detachment [Unknown]
  - Macular hole [Unknown]
  - Epiretinal membrane [Unknown]
  - Off label use [Unknown]
